FAERS Safety Report 16255502 (Version 3)
Quarter: 2019Q2

REPORT INFORMATION
  Report Type: Spontaneous
  Country: US (occurrence: US)
  Receive Date: 20190430
  Receipt Date: 20190625
  Transmission Date: 20190711
  Serious: Yes (Other)
  Sender: FDA-Public Use
  Company Number: US-BAYER-2019-083261

PATIENT
  Age: 31 Year
  Sex: Female
  Weight: 70.3 kg

DRUGS (11)
  1. AMOXICILLIN;CLAVULANATE POTASSIUM [Concomitant]
     Dosage: 125 MG
  2. PNV [Concomitant]
  3. ADACEL TDAP [Concomitant]
     Active Substance: TETANUS TOXOID, REDUCED DIPHTHERIA TOXOID AND ACELLULAR PERTUSSIS VACCINE ADSORBED, TDAP
  4. LEVOTHYROXINE. [Concomitant]
     Active Substance: LEVOTHYROXINE
  5. MIRENA [Suspect]
     Active Substance: LEVONORGESTREL
     Indication: CONTRACEPTION
     Dosage: 20 MCG/24HR, CONT
     Route: 015
     Dates: start: 20190417, end: 20190417
  6. FLUVIRIN [INFLUENZA VACCINE INACT SAG 3V] [Concomitant]
  7. MIRENA [Suspect]
     Active Substance: LEVONORGESTREL
     Indication: CONTRACEPTION
     Dosage: 20 MCG/24HR, CONT
     Route: 015
     Dates: start: 20190417, end: 20190422
  8. PRENATAL [ASCORBIC ACID;CALCIUM GLUCONATE;CUPRIC CARBONATE, BASIC; [Concomitant]
  9. DIFLUCAN [Concomitant]
     Active Substance: FLUCONAZOLE
  10. MIRENA [Suspect]
     Active Substance: LEVONORGESTREL
     Indication: CONTRACEPTION
  11. ANTIOXIDANT [ASCORBIC ACID;BETACAROTENE;SELENIUM;TOCOPHEROL] [Concomitant]

REACTIONS (10)
  - Pelvic pain [None]
  - Embedded device [Recovered/Resolved]
  - Device deployment issue [Recovered/Resolved]
  - Procedural pain [None]
  - Constipation [None]
  - Uterine perforation [Recovered/Resolved]
  - Perineal pain [None]
  - Abdominal pain [Recovered/Resolved]
  - Abdominal pain lower [Recovered/Resolved]
  - Cervical cyst [None]

NARRATIVE: CASE EVENT DATE: 20190417
